FAERS Safety Report 7395050-X (Version None)
Quarter: 2011Q2

REPORT INFORMATION
  Report Type: 
  Country: None (occurrence: None)
  Receive Date: 20110405
  Receipt Date: 20110325
  Transmission Date: 20111010
  Serious: Yes (Hospitalization, Disabling, Other)
  Sender: FDA-Public Use
  Company Number: JP-MERCK-1103USA03643

PATIENT
  Age: 51 Year
  Sex: Female

DRUGS (13)
  1. MAINHEART [Concomitant]
     Route: 065
  2. ADETPHOS [Concomitant]
     Route: 065
  3. TANATRIL [Concomitant]
     Route: 065
  4. LASIX [Concomitant]
     Route: 065
  5. NORVASC [Concomitant]
     Route: 065
  6. ALDACTONE [Concomitant]
     Route: 065
  7. MERISLON [Concomitant]
     Route: 065
  8. SODIUM BICARBONATE [Concomitant]
     Route: 065
  9. OLMETEC [Concomitant]
     Route: 065
  10. FLUTIDE [Concomitant]
     Route: 065
  11. JANUVIA [Suspect]
     Indication: TYPE 2 DIABETES MELLITUS
     Route: 048
     Dates: start: 20110209, end: 20110315
  12. MELBIN [Concomitant]
     Route: 065
  13. AMARYL [Concomitant]
     Route: 065

REACTIONS (1)
  - RENAL FAILURE ACUTE [None]
